FAERS Safety Report 6706857-3 (Version None)
Quarter: 2010Q2

REPORT INFORMATION
  Report Type: 
  Country: None (occurrence: None)
  Receive Date: 20100503
  Receipt Date: 20100421
  Transmission Date: 20101027
  Serious: Yes (Hospitalization)
  Sender: FDA-Public Use
  Company Number: DE-ELI_LILLY_AND_COMPANY-DE201003002234

PATIENT
  Age: 53 Year
  Sex: Male

DRUGS (3)
  1. CYMBALTA [Suspect]
     Indication: DEPRESSION
     Dosage: 180 MG, DAILY (1/D)
     Route: 048
  2. CYMBALTA [Suspect]
     Dosage: UNK, UNKNOWN
     Route: 048
  3. CYMBALTA [Suspect]
     Dosage: UNK, UNKNOWN
     Route: 048

REACTIONS (3)
  - GENERAL PHYSICAL HEALTH DETERIORATION [None]
  - HOSPITALISATION [None]
  - OVERDOSE [None]
